FAERS Safety Report 25772709 (Version 1)
Quarter: 2025Q3

REPORT INFORMATION
  Report Type: Report from Study
  Country: KR (occurrence: KR)
  Receive Date: 20250908
  Receipt Date: 20250908
  Transmission Date: 20251021
  Serious: Yes (Hospitalization, Other)
  Sender: MYLAN
  Company Number: KR-MYLANLABS-2025M1074832

PATIENT
  Sex: Male
  Weight: 64.1 kg

DRUGS (62)
  1. LIPITOR [Suspect]
     Active Substance: ATORVASTATIN CALCIUM
     Indication: Hyperlipidaemia
     Dosage: 10 MILLIGRAM, QD
  2. BEVACIZUMAB [Suspect]
     Active Substance: BEVACIZUMAB
     Indication: Colorectal cancer metastatic
     Dosage: 330 MILLIGRAM, BIWEEKLY
     Dates: start: 20221212, end: 20221212
  3. BEVACIZUMAB [Suspect]
     Active Substance: BEVACIZUMAB
     Dosage: 388 MILLIGRAM, BIWEEKLY
     Dates: start: 20221227
  4. LACTULOSE [Suspect]
     Active Substance: LACTULOSE
     Indication: Constipation prophylaxis
     Dosage: 15 MILLILITER, Q8H
     Dates: start: 20221124
  5. ESOMEPRAZOLE MAGNESIUM [Suspect]
     Active Substance: ESOMEPRAZOLE MAGNESIUM
     Indication: Dyspepsia
     Dosage: 20 MILLIGRAM, QD
     Dates: start: 2022
  6. ESOMEPRAZOLE MAGNESIUM [Suspect]
     Active Substance: ESOMEPRAZOLE MAGNESIUM
     Indication: Prophylaxis
  7. CIMETIDINE [Suspect]
     Active Substance: CIMETIDINE
     Indication: Prophylaxis
     Dosage: 200 MILLIGRAM, Q8H
     Dates: start: 2022
  8. CIMETIDINE [Suspect]
     Active Substance: CIMETIDINE
     Indication: Dyspepsia
  9. METFORMIN HYDROCHLORIDE [Suspect]
     Active Substance: METFORMIN HYDROCHLORIDE
     Indication: Hypertension
     Dosage: 500 MILLIGRAM, BID
  10. METFORMIN HYDROCHLORIDE [Suspect]
     Active Substance: METFORMIN HYDROCHLORIDE
     Indication: Diabetes mellitus
  11. DUTASTERIDE [Suspect]
     Active Substance: DUTASTERIDE
     Indication: Benign prostatic hyperplasia
     Dosage: 0.5 MILLIGRAM, QD
     Dates: end: 20221214
  12. DUTASTERIDE [Suspect]
     Active Substance: DUTASTERIDE
     Dosage: 0.5 MILLIGRAM, QD
     Dates: start: 20221215
  13. CANDESARTAN CILEXETIL [Suspect]
     Active Substance: CANDESARTAN CILEXETIL
     Indication: Hypertension
     Dosage: 8 MILLIGRAM, QD
     Dates: end: 20221221
  14. CANDESARTAN CILEXETIL [Suspect]
     Active Substance: CANDESARTAN CILEXETIL
  15. LIMAPROST [Suspect]
     Active Substance: LIMAPROST
     Indication: Hypertension
     Dosage: 5 MICROGRAM, Q8H
     Dates: end: 20221229
  16. LIMAPROST [Suspect]
     Active Substance: LIMAPROST
  17. MORPHINE HYDROCHLORIDE [Suspect]
     Active Substance: MORPHINE HYDROCHLORIDE
     Indication: Cancer pain
     Dosage: 5 MILLIGRAM, QD
     Dates: start: 20221212, end: 20221219
  18. MORPHINE HYDROCHLORIDE [Suspect]
     Active Substance: MORPHINE HYDROCHLORIDE
  19. OXALIPLATIN [Suspect]
     Active Substance: OXALIPLATIN
     Indication: Colon cancer
     Dosage: 104 MILLIGRAM, QD
     Dates: start: 20221212, end: 20221212
  20. OXALIPLATIN [Suspect]
     Active Substance: OXALIPLATIN
     Dosage: 75 MILLIGRAM, QD
     Dates: start: 20221227, end: 20221227
  21. OXALIPLATIN [Suspect]
     Active Substance: OXALIPLATIN
  22. FLUOROURACIL [Suspect]
     Active Substance: FLUOROURACIL
     Indication: Colon cancer
     Dosage: 490 MILLIGRAM, QD
     Dates: start: 20221212, end: 20221212
  23. FLUOROURACIL [Suspect]
     Active Substance: FLUOROURACIL
     Dosage: 1470 MILLIGRAM, QD
     Dates: start: 20221212, end: 20221213
  24. FLUOROURACIL [Suspect]
     Active Substance: FLUOROURACIL
     Dosage: 354 MILLIGRAM, QD
     Dates: start: 20221227, end: 20221227
  25. FLUOROURACIL [Suspect]
     Active Substance: FLUOROURACIL
     Dosage: 1062 MILLIGRAM, QD
     Dates: start: 20221227, end: 20221228
  26. FLUOROURACIL [Suspect]
     Active Substance: FLUOROURACIL
  27. PALONOSETRON HYDROCHLORIDE [Suspect]
     Active Substance: PALONOSETRON HYDROCHLORIDE
     Indication: Vomiting
     Dosage: 0.25 MILLIGRAM, QD
     Dates: start: 20221212, end: 20221212
  28. PALONOSETRON HYDROCHLORIDE [Suspect]
     Active Substance: PALONOSETRON HYDROCHLORIDE
     Indication: Prophylaxis
     Dosage: 0.25 MILLIGRAM, QD
     Dates: start: 20221227, end: 20221227
  29. PALONOSETRON HYDROCHLORIDE [Suspect]
     Active Substance: PALONOSETRON HYDROCHLORIDE
  30. METOCLOPRAMIDE HYDROCHLORIDE [Suspect]
     Active Substance: METOCLOPRAMIDE HYDROCHLORIDE
     Indication: Vomiting
     Dosage: 10 MILLIGRAM, QD
     Dates: start: 20221212, end: 20221215
  31. METOCLOPRAMIDE HYDROCHLORIDE [Suspect]
     Active Substance: METOCLOPRAMIDE HYDROCHLORIDE
     Indication: Prophylaxis
     Dosage: 10 MILLIGRAM, QD
     Dates: start: 20221227, end: 20221227
  32. METOCLOPRAMIDE HYDROCHLORIDE [Suspect]
     Active Substance: METOCLOPRAMIDE HYDROCHLORIDE
  33. DEXAMETHASONE SODIUM PHOSPHATE [Suspect]
     Active Substance: DEXAMETHASONE SODIUM PHOSPHATE
     Indication: Prophylaxis
     Dosage: 10 MILLIGRAM, QD
     Dates: start: 20221212, end: 20221212
  34. DEXAMETHASONE SODIUM PHOSPHATE [Suspect]
     Active Substance: DEXAMETHASONE SODIUM PHOSPHATE
     Indication: Vomiting
     Dosage: 8 MILLIGRAM, QD
     Dates: start: 20221213, end: 20221214
  35. DEXAMETHASONE SODIUM PHOSPHATE [Suspect]
     Active Substance: DEXAMETHASONE SODIUM PHOSPHATE
     Dosage: 10 MILLIGRAM, QD
     Dates: start: 20221227, end: 20221227
  36. DEXAMETHASONE SODIUM PHOSPHATE [Suspect]
     Active Substance: DEXAMETHASONE SODIUM PHOSPHATE
     Dosage: 8 MILLIGRAM, QD
     Dates: start: 20221228, end: 20221229
  37. DEXAMETHASONE SODIUM PHOSPHATE [Suspect]
     Active Substance: DEXAMETHASONE SODIUM PHOSPHATE
  38. CHLORPHENIRAMINE MALEATE [Suspect]
     Active Substance: CHLORPHENIRAMINE MALEATE
     Indication: Vomiting
     Dosage: 4 MILLIGRAM, QD
     Dates: start: 20221212, end: 20221212
  39. CHLORPHENIRAMINE MALEATE [Suspect]
     Active Substance: CHLORPHENIRAMINE MALEATE
     Indication: Prophylaxis
     Dosage: 4 MILLIGRAM, QD
     Dates: start: 20221227, end: 20221227
  40. CHLORPHENIRAMINE MALEATE [Suspect]
     Active Substance: CHLORPHENIRAMINE MALEATE
  41. ACETAMINOPHEN [Suspect]
     Active Substance: ACETAMINOPHEN
     Indication: Premedication
     Dosage: 650 MILLIGRAM, QD
     Dates: start: 20221212, end: 20221212
  42. ACETAMINOPHEN [Suspect]
     Active Substance: ACETAMINOPHEN
  43. MINOXIDIL [Suspect]
     Active Substance: MINOXIDIL
     Indication: Hypertension
     Dosage: 5 MILLIGRAM, QD
     Dates: start: 20221219
  44. CARVEDILOL [Suspect]
     Active Substance: CARVEDILOL
     Indication: Hypertension
     Dosage: 25 MILLIGRAM, QD
     Dates: start: 20221222
  45. NICARDIPINE HYDROCHLORIDE [Suspect]
     Active Substance: NICARDIPINE HYDROCHLORIDE
     Indication: Hypertension
     Dosage: 2 MILLIGRAM, Q6H
     Dates: start: 20221216, end: 20221217
  46. NICARDIPINE HYDROCHLORIDE [Suspect]
     Active Substance: NICARDIPINE HYDROCHLORIDE
  47. PIROXICAM [Suspect]
     Active Substance: PIROXICAM
     Indication: Cancer pain
     Dosage: 96 MILLIGRAM, QD
     Dates: start: 20221216, end: 20221227
  48. PIROXICAM [Suspect]
     Active Substance: PIROXICAM
     Dosage: 240 MILLIGRAM, QD
     Dates: start: 20221228
  49. NIFEDIPINE [Suspect]
     Active Substance: NIFEDIPINE
     Indication: Hypertension
     Dosage: 30 MILLIGRAM, QD
     Dates: start: 20221217
  50. LEUCOVORIN CALCIUM [Suspect]
     Active Substance: LEUCOVORIN CALCIUM
     Indication: Colon cancer
     Dosage: 490 MILLIGRAM, QD
     Dates: start: 20221212, end: 20221212
  51. LEUCOVORIN CALCIUM [Suspect]
     Active Substance: LEUCOVORIN CALCIUM
     Dosage: 354 MILLIGRAM, QD
     Dates: start: 20221227, end: 20221227
  52. LEUCOVORIN CALCIUM [Suspect]
     Active Substance: LEUCOVORIN CALCIUM
  53. ZOLEDRONIC ACID [Suspect]
     Active Substance: ZOLEDRONIC ACID
     Indication: Colon cancer
     Dosage: 4 MILLIGRAM, QD
     Dates: start: 20221222, end: 20221222
  54. ZOLEDRONIC ACID [Suspect]
     Active Substance: ZOLEDRONIC ACID
  55. PIPERACILLIN AND TAZOBACTAM [Suspect]
     Active Substance: PIPERACILLIN SODIUM\TAZOBACTAM SODIUM
     Indication: Pyrexia
     Dosage: 4.5 GRAM, Q8H
     Dates: start: 20221223, end: 20221225
  56. PIPERACILLIN AND TAZOBACTAM [Suspect]
     Active Substance: PIPERACILLIN SODIUM\TAZOBACTAM SODIUM
  57. MORPHINE SULFATE [Suspect]
     Active Substance: MORPHINE SULFATE
     Indication: Cancer pain
  58. ALBUMIN HUMAN [Suspect]
     Active Substance: ALBUMIN HUMAN
     Indication: Hypoalbuminaemia
     Dosage: 100 MILLILITER, QD
     Dates: start: 20221220, end: 20221221
  59. ALBUMIN HUMAN [Suspect]
     Active Substance: ALBUMIN HUMAN
  60. ESCITALOPRAM OXALATE [Suspect]
     Active Substance: ESCITALOPRAM OXALATE
     Indication: Product used for unknown indication
     Dosage: 2.5 GRAM, QD
     Dates: start: 20221229
  61. BENZYDAMINE HYDROCHLORIDE [Suspect]
     Active Substance: BENZYDAMINE HYDROCHLORIDE
     Indication: Prophylaxis
     Dosage: 15 MILLILITER, Q8H
     Dates: start: 20221219
  62. BENZYDAMINE HYDROCHLORIDE [Suspect]
     Active Substance: BENZYDAMINE HYDROCHLORIDE
     Indication: Mucosal inflammation

REACTIONS (2)
  - Pneumonia [Not Recovered/Not Resolved]
  - Product use issue [Unknown]

NARRATIVE: CASE EVENT DATE: 20221229
